FAERS Safety Report 11566748 (Version 2)
Quarter: 2017Q3

REPORT INFORMATION
  Report Type: Other
  Country: DE (occurrence: DE)
  Receive Date: 20150929
  Receipt Date: 20170726
  Transmission Date: 20171127
  Serious: Yes (Hospitalization, Other)
  Sender: FDA-Public Use
  Company Number: DE-DEXPHARM-20151555

PATIENT
  Sex: Male

DRUGS (6)
  1. FORMOTEROL [Concomitant]
     Active Substance: FORMOTEROL
     Route: 055
  2. OMEPRAZOLE. [Suspect]
     Active Substance: OMEPRAZOLE
     Dosage: 20 MG/DAY
  3. DICLOFENAC [Suspect]
     Active Substance: DICLOFENAC
     Indication: RHEUMATOID ARTHRITIS
     Dosage: 75 MG TWICE DAILY
  4. BECLOMETHASONE [Concomitant]
     Active Substance: BECLOMETHASONE
     Route: 055
  5. PREDNISOLONE. [Concomitant]
     Active Substance: PREDNISOLONE
     Dosage: 6 MG/DAY
  6. SULFASALAZINE. [Suspect]
     Active Substance: SULFASALAZINE
     Dosage: 500 MG/DAY

REACTIONS (3)
  - Foetal growth restriction [Recovered/Resolved]
  - Talipes [Unknown]
  - Oligohydramnios [Recovered/Resolved]
